FAERS Safety Report 8976306 (Version 7)
Quarter: 2016Q2

REPORT INFORMATION
  Report Type: Spontaneous
  Country: US (occurrence: US)
  Receive Date: 20121220
  Receipt Date: 20160509
  Transmission Date: 20160815
  Serious: Yes (Hospitalization, Other)
  Sender: FDA-Public Use
  Company Number: US-009507513-1212USA007579

PATIENT
  Sex: Female

DRUGS (3)
  1. FOSAMAX [Suspect]
     Active Substance: ALENDRONATE SODIUM
     Indication: OSTEOPOROSIS
     Dosage: UNK, UNKNOWN
     Route: 048
     Dates: start: 1995
  2. FOSAMAX [Suspect]
     Active Substance: ALENDRONATE SODIUM
     Dosage: 70 MG, QW
     Route: 048
     Dates: end: 2004
  3. ALENDRONATE SODIUM. [Suspect]
     Active Substance: ALENDRONATE SODIUM
     Indication: OSTEOPOROSIS
     Dosage: 70 MG, QW
     Route: 048
     Dates: start: 20090211, end: 2011

REACTIONS (66)
  - Knee arthroplasty [Unknown]
  - Knee arthroplasty [Unknown]
  - Rotator cuff repair [Unknown]
  - Overgrowth bacterial [Unknown]
  - Deep vein thrombosis [Unknown]
  - Hysterectomy [Unknown]
  - Skin papilloma [Unknown]
  - Skin abrasion [Unknown]
  - Malaise [Unknown]
  - Myocardial infarction [Unknown]
  - Transient ischaemic attack [Unknown]
  - Bone disorder [Unknown]
  - Tricuspid valve disease [Unknown]
  - Anxiety disorder [Unknown]
  - Aortic valve disease [Unknown]
  - Pneumonia [Recovered/Resolved]
  - Anaphylactic reaction [Unknown]
  - Cystopexy [Unknown]
  - Varicose vein [Unknown]
  - Obstructive airways disorder [Unknown]
  - Tendonitis [Unknown]
  - Lipoatrophy [Unknown]
  - Major depression [Unknown]
  - Mitral valve disease [Unknown]
  - Gastrooesophageal reflux disease [Unknown]
  - Fall [Unknown]
  - Atrial fibrillation [Unknown]
  - Foot deformity [Unknown]
  - Restless legs syndrome [Unknown]
  - Joint contracture [Unknown]
  - Cystitis [Unknown]
  - Low turnover osteopathy [Unknown]
  - Hypertension [Unknown]
  - Onychomycosis [Unknown]
  - Nodal osteoarthritis [Unknown]
  - Seborrhoeic keratosis [Unknown]
  - Gastric bypass [Unknown]
  - Arthrodesis [Unknown]
  - Bundle branch block bilateral [Unknown]
  - Fall [Unknown]
  - Cholecystitis [Unknown]
  - Acute sinusitis [Unknown]
  - Bronchitis [Unknown]
  - Mixed incontinence [Unknown]
  - Cardiomegaly [Unknown]
  - Osteopenia [Unknown]
  - Gastritis [Unknown]
  - Laceration [Recovered/Resolved]
  - Hypokalaemia [Unknown]
  - Biliary cirrhosis [Unknown]
  - Appendicectomy [Unknown]
  - Oedema [Unknown]
  - Drug hypersensitivity [Unknown]
  - Spinal operation [Unknown]
  - Femur fracture [Unknown]
  - Femur fracture [Recovering/Resolving]
  - Lower limb fracture [Unknown]
  - Inguinal hernia [Unknown]
  - Migraine [Unknown]
  - Cataract [Unknown]
  - Rectal abscess [Unknown]
  - Hiatus hernia [Unknown]
  - Intervertebral disc degeneration [Unknown]
  - Diarrhoea [Unknown]
  - Impaired healing [Unknown]
  - Dyspepsia [Unknown]

NARRATIVE: CASE EVENT DATE: 2005
